FAERS Safety Report 5769202-6 (Version None)
Quarter: 2008Q2

REPORT INFORMATION
  Report Type: 
  Country: None (occurrence: None)
  Receive Date: 20080612
  Receipt Date: 20080325
  Transmission Date: 20081010
  Serious: No
  Sender: FDA-Public Use
  Company Number: US-ABBOTT-08P-163-0444085-00

PATIENT
  Sex: Female
  Weight: 68.1 kg

DRUGS (6)
  1. HUMIRA [Suspect]
     Indication: PSORIATIC ARTHROPATHY
     Route: 058
     Dates: start: 20071227, end: 20080123
  2. HUMIRA [Suspect]
     Route: 058
     Dates: start: 20080321
  3. HORMONE REPLACEMENT [Concomitant]
     Indication: HORMONE REPLACEMENT THERAPY
  4. TYLENOL PM [Concomitant]
     Indication: INSOMNIA
  5. LORATADINE [Concomitant]
     Indication: SEASONAL ALLERGY
  6. GUAIFENESIN [Concomitant]
     Indication: SEASONAL ALLERGY

REACTIONS (7)
  - CHEST DISCOMFORT [None]
  - COUGH [None]
  - FLUSHING [None]
  - INJECTION SITE RASH [None]
  - JOINT SWELLING [None]
  - NIGHT SWEATS [None]
  - UPPER RESPIRATORY TRACT INFECTION [None]
